FAERS Safety Report 5333440-7 (Version None)
Quarter: 2007Q2

REPORT INFORMATION
  Report Type: 
  Country: None (occurrence: None)
  Receive Date: 20070524
  Receipt Date: 20070516
  Transmission Date: 20071010
  Serious: Yes (Hospitalization)
  Sender: FDA-Public Use
  Company Number: US-KINGPHARMUSA00001-K200700600

PATIENT

DRUGS (2)
  1. ALTACE [Suspect]
     Dosage: UNK, QD
     Route: 048
  2. UNKNOWN DRUG RAD 666RAD [Suspect]
     Indication: RENAL TRANSPLANT
     Dosage: .7 MG, QD
     Route: 048

REACTIONS (6)
  - ANAEMIA [None]
  - BLOOD CREATININE INCREASED [None]
  - LYMPHOCELE [None]
  - RENAL ARTERY STENOSIS [None]
  - RENAL FAILURE ACUTE [None]
  - RENAL IMPAIRMENT [None]
